FAERS Safety Report 18320779 (Version 8)
Quarter: 2022Q3

REPORT INFORMATION
  Report Type: Report from Study
  Country: US (occurrence: US)
  Receive Date: 20200929
  Receipt Date: 20220928
  Transmission Date: 20221027
  Serious: Yes (Hospitalization, Other)
  Sender: FDA-Public Use
  Company Number: US-SHIRE-US202028996

PATIENT
  Age: 0 Year
  Sex: Male
  Weight: 11 kg

DRUGS (10)
  1. IDURSULFASE [Suspect]
     Active Substance: IDURSULFASE
     Indication: Mucopolysaccharidosis II
     Dosage: 8.5 MILLIGRAM, 1/WEEK
     Route: 042
     Dates: start: 20220426
  2. IDURSULFASE [Suspect]
     Active Substance: IDURSULFASE
     Indication: Illness
     Dosage: 8.5 MILLIGRAM, 1/WEEK
     Route: 042
     Dates: start: 20200611
  3. IDURSULFASE [Suspect]
     Active Substance: IDURSULFASE
     Indication: Mucopolysaccharidosis IV
     Dosage: 6 MILLIGRAM, 1/WEEK
     Route: 042
     Dates: start: 20200706
  4. IDURSULFASE [Suspect]
     Active Substance: IDURSULFASE
     Dosage: 6 MILLIGRAM, 1/WEEK
     Route: 042
     Dates: start: 20200709
  5. IDURSULFASE [Suspect]
     Active Substance: IDURSULFASE
     Dosage: 8.5 MILLIGRAM, 1/WEEK
     Route: 042
     Dates: start: 20200709
  6. IDURSULFASE [Suspect]
     Active Substance: IDURSULFASE
     Dosage: 6 MILLIGRAM, 1/WEEK
     Route: 042
     Dates: start: 20200716
  7. LASIX [Concomitant]
     Active Substance: FUROSEMIDE
     Indication: Mitral valve incompetence
     Dosage: UNK
     Route: 065
  8. IBUPROFEN [Concomitant]
     Active Substance: IBUPROFEN
     Indication: Product used for unknown indication
     Dosage: 100 MILLIGRAM, 1/WEEK
     Route: 048
     Dates: start: 202010
  9. DIPHENHYDRAMINE [Concomitant]
     Active Substance: DIPHENHYDRAMINE
     Indication: Product used for unknown indication
     Dosage: 15 MILLIGRAM
     Route: 042
     Dates: start: 202010
  10. SOLU-MEDROL [Concomitant]
     Active Substance: METHYLPREDNISOLONE SODIUM SUCCINATE
     Indication: Product used for unknown indication
     Dosage: 10 MILLIGRAM, 1/WEEK
     Route: 042
     Dates: start: 202010

REACTIONS (15)
  - Influenza [Unknown]
  - Respiratory disorder [Unknown]
  - Loss of consciousness [Not Recovered/Not Resolved]
  - Infusion related reaction [Not Recovered/Not Resolved]
  - Malaise [Recovered/Resolved]
  - Drug specific antibody present [Recovered/Resolved]
  - Drug specific antibody absent [Recovered/Resolved]
  - Vomiting [Recovered/Resolved]
  - Tachycardia [Recovered/Resolved]
  - Nasal congestion [Recovered/Resolved]
  - Pyrexia [Recovered/Resolved]
  - Erythema of eyelid [Recovered/Resolved]
  - Urticaria [Recovered/Resolved]
  - Product dose omission issue [Recovered/Resolved]
  - Inappropriate schedule of product administration [Recovered/Resolved]

NARRATIVE: CASE EVENT DATE: 20200827
